FAERS Safety Report 17294035 (Version 1)
Quarter: 2020Q1

REPORT INFORMATION
  Report Type: Report from Study
  Country: BR (occurrence: BR)
  Receive Date: 20200121
  Receipt Date: 20200121
  Transmission Date: 20200409
  Serious: Yes (Hospitalization, Other)
  Sender: FDA-Public Use
  Company Number: BR-ROCHE-2471422

PATIENT
  Sex: Female

DRUGS (2)
  1. XOLAIR [Suspect]
     Active Substance: OMALIZUMAB
     Route: 065
     Dates: start: 201909
  2. XOLAIR [Suspect]
     Active Substance: OMALIZUMAB
     Indication: URTICARIA
     Dosage: 2 DF, QMO
     Route: 065
     Dates: start: 20180503

REACTIONS (13)
  - Dizziness [Unknown]
  - Throat tightness [Unknown]
  - Pneumonia [Unknown]
  - Vomiting [Unknown]
  - Headache [Unknown]
  - General physical health deterioration [Unknown]
  - Hypersensitivity [Unknown]
  - Dehydration [Unknown]
  - Pharyngeal swelling [Unknown]
  - Cough [Unknown]
  - Asthenia [Unknown]
  - Malaise [Unknown]
  - Pain [Unknown]

NARRATIVE: CASE EVENT DATE: 201908
